FAERS Safety Report 6491236-7 (Version None)
Quarter: 2009Q4

REPORT INFORMATION
  Report Type: 
  Country: None (occurrence: None)
  Receive Date: 20091211
  Receipt Date: 20091202
  Transmission Date: 20100525
  Serious: Yes (Hospitalization, Other)
  Sender: FDA-Public Use
  Company Number: PHHY2009JP32704

PATIENT
  Sex: Male
  Weight: 58 kg

DRUGS (10)
  1. ZOMETA [Suspect]
     Indication: MULTIPLE MYELOMA
     Dosage: 4 MG, QMO
     Route: 042
     Dates: start: 20090101, end: 20090715
  2. OMEPRAL [Suspect]
     Dosage: 10 MG DAILY
     Route: 048
  3. HYPEN [Suspect]
     Dosage: 200 MG DAILY
     Route: 048
  4. ADALAT [Suspect]
     Indication: ANGINA PECTORIS
     Dosage: 20 MG DAILY
     Route: 048
  5. KETOBUN [Suspect]
     Dosage: 100 MG DAILY
     Route: 048
  6. DEPAS [Suspect]
     Dosage: 0.5 MG DAILY
     Route: 048
  7. DAONIL [Suspect]
     Indication: DIABETES MELLITUS
     Dosage: 2.5 MG DAILY
     Route: 048
     Dates: end: 20090717
  8. PREDONINE [Suspect]
     Dosage: 65 MG DAILY
     Route: 048
  9. FLOMOX [Concomitant]
     Dosage: 300 MG (3 TABLETS DAILY)
     Route: 048
     Dates: start: 20090706
  10. CLARITH [Concomitant]
     Dosage: 800 MG (4 TABLETS DAILY)
     Route: 048
     Dates: start: 20090710

REACTIONS (15)
  - ABSCESS MANAGEMENT [None]
  - BLOOD CREATININE INCREASED [None]
  - BONE DISORDER [None]
  - GINGIVAL SWELLING [None]
  - HAEMATOCRIT DECREASED [None]
  - HAEMOGLOBIN DECREASED [None]
  - HYPOGLYCAEMIA [None]
  - INFECTION [None]
  - LOSS OF CONSCIOUSNESS [None]
  - OSTEONECROSIS [None]
  - PERIODONTITIS [None]
  - PURULENT DISCHARGE [None]
  - SEQUESTRECTOMY [None]
  - TOOTH ABSCESS [None]
  - TOOTH EXTRACTION [None]
